FAERS Safety Report 6284859-1 (Version None)
Quarter: 2009Q3

REPORT INFORMATION
  Report Type: 
  Country: None (occurrence: None)
  Receive Date: 20090727
  Receipt Date: 20090720
  Transmission Date: 20100115
  Serious: Yes (Other)
  Sender: FDA-Public Use
  Company Number: A0797637A

PATIENT
  Age: 80 Year
  Sex: Female

DRUGS (8)
  1. ADVAIR HFA [Suspect]
     Indication: ASTHMA
     Dosage: 1PUFF PER DAY
     Route: 055
     Dates: start: 20070701
  2. SYNTHROID [Concomitant]
  3. NORVASC [Concomitant]
  4. METOPROLOL SUCCINATE [Concomitant]
  5. LASIX [Concomitant]
  6. ASPIRIN [Concomitant]
  7. POTASSIUM CHLORIDE [Concomitant]
  8. NEXIUM [Concomitant]

REACTIONS (1)
  - MACULAR DEGENERATION [None]
